FAERS Safety Report 14049095 (Version 1)
Quarter: 2017Q4

REPORT INFORMATION
  Report Type: Report from Study
  Country: US (occurrence: US)
  Receive Date: 20171005
  Receipt Date: 20171005
  Transmission Date: 20180321
  Serious: Yes (Other)
  Sender: FDA-Public Use
  Company Number: US-MYLANLABS-2017M1061905

PATIENT
  Age: 39 Year
  Sex: Male

DRUGS (2)
  1. METHYLENEDIOXYMETHAMPHETAMINE [Suspect]
     Active Substance: MIDOMAFETAMINE
     Indication: PRODUCT USED FOR UNKNOWN INDICATION
     Route: 048
  2. LOPERAMIDE [Suspect]
     Active Substance: LOPERAMIDE
     Indication: PRODUCT USED FOR UNKNOWN INDICATION
     Dosage: 40MG
     Route: 048

REACTIONS (7)
  - Intentional overdose [Unknown]
  - Intentional product misuse [Unknown]
  - Confusional state [Unknown]
  - Somnolence [Unknown]
  - Muscular weakness [Unknown]
  - Respiratory depression [Unknown]
  - Lethargy [Unknown]
